FAERS Safety Report 10182778 (Version 1)
Quarter: 2014Q2

REPORT INFORMATION
  Report Type: Spontaneous
  Country: US (occurrence: US)
  Receive Date: 20140520
  Receipt Date: 20140520
  Transmission Date: 20141212
  Serious: Yes (Other)
  Sender: FDA-Public Use
  Company Number: US-SA-2014SA063508

PATIENT
  Age: 45 Year
  Sex: Male

DRUGS (1)
  1. AMBIEN [Suspect]
     Indication: INSOMNIA
     Dosage: FREQUENCY: TWO 10 MG PILS
     Route: 065

REACTIONS (10)
  - Homicide [Unknown]
  - Glassy eyes [Unknown]
  - Catatonia [Unknown]
  - Confusional state [Unknown]
  - Insomnia [Unknown]
  - Drug effect decreased [Unknown]
  - Gait disturbance [Unknown]
  - Incoherent [Unknown]
  - Memory impairment [Unknown]
  - Extra dose administered [Unknown]
